FAERS Safety Report 8489138 (Version 2)
Quarter: 2013Q2

REPORT INFORMATION
  Report Type: Spontaneous
  Country: US (occurrence: US)
  Receive Date: 20120402
  Receipt Date: 20130604
  Transmission Date: 20140414
  Serious: No
  Sender: FDA-Public Use
  Company Number: US-AMGEN-USASP2012014267

PATIENT
  Age: 62 Year
  Sex: Male

DRUGS (3)
  1. ENBREL [Suspect]
     Indication: RHEUMATOID ARTHRITIS
     Dosage: 50 MG, Q2WK
     Dates: start: 20040701
  2. PREDNISONE [Concomitant]
     Dosage: UNK
  3. VITAMIN B 6 [Concomitant]
     Dosage: UNK

REACTIONS (6)
  - Anxiety [Not Recovered/Not Resolved]
  - Feeling abnormal [Not Recovered/Not Resolved]
  - Serum ferritin increased [Recovered/Resolved]
  - Hepatic enzyme increased [Recovered/Resolved]
  - Rash erythematous [Recovered/Resolved]
  - Platelet count decreased [Not Recovered/Not Resolved]
